FAERS Safety Report 6333140-0 (Version None)
Quarter: 2009Q3

REPORT INFORMATION
  Report Type: 
  Country: None (occurrence: None)
  Receive Date: 20090828
  Receipt Date: 20090821
  Transmission Date: 20100115
  Serious: Yes (Other)
  Sender: FDA-Public Use
  Company Number: JP-MERCK-0908USA04174

PATIENT
  Age: 53 Year
  Sex: Male

DRUGS (3)
  1. PROPECIA [Suspect]
     Indication: ANDROGENETIC ALOPECIA
     Route: 048
     Dates: start: 20071128
  2. PROPECIA [Suspect]
     Route: 065
  3. URSO 250 [Concomitant]
     Indication: HEPATITIS B
     Route: 048

REACTIONS (1)
  - HEPATIC FUNCTION ABNORMAL [None]
